FAERS Safety Report 4716257-3 (Version None)
Quarter: 2005Q2

REPORT INFORMATION
  Report Type: 
  Country: None (occurrence: None)
  Receive Date: 20050630
  Receipt Date: 20050413
  Transmission Date: 20051028
  Serious: Yes (Hospitalization)
  Sender: FDA-Public Use
  Company Number: USA050495601

PATIENT
  Age: 9 Year
  Sex: Female

DRUGS (2)
  1. HUMALOG [Suspect]
     Indication: DIABETES MELLITUS
     Dosage: 9 U DAY
     Dates: start: 19960101
  2. NOVOLIN N [Concomitant]

REACTIONS (1)
  - BLOOD GLUCOSE INCREASED [None]
